FAERS Safety Report 20616128 (Version 1)
Quarter: 2022Q1

REPORT INFORMATION
  Report Type: Spontaneous
  Country: US (occurrence: None)
  Receive Date: 20220318
  Receipt Date: 20220318
  Transmission Date: 20220423
  Serious: No
  Sender: FDA-Public Use
  Company Number: None

PATIENT
  Age: 55 Year
  Sex: Female
  Weight: 68.04 kg

DRUGS (8)
  1. EXEMESTANE [Suspect]
     Active Substance: EXEMESTANE
     Indication: Breast cancer female
     Dosage: FREQUENCY : DAILY;?
     Route: 048
  2. CITALOPRAM [Concomitant]
     Active Substance: CITALOPRAM HYDROBROMIDE
  3. LETROZOLE [Concomitant]
     Active Substance: LETROZOLE
  4. VITAMINS [Concomitant]
     Active Substance: VITAMINS
  5. NAPROXEN [Concomitant]
     Active Substance: NAPROXEN
  6. ONDANSETRON [Concomitant]
     Active Substance: ONDANSETRON
  7. TRAMADOL [Concomitant]
     Active Substance: TRAMADOL
  8. Wellburtin XL [Concomitant]

REACTIONS (7)
  - Nausea [None]
  - Vomiting [None]
  - Tinnitus [None]
  - Diarrhoea [None]
  - Dehydration [None]
  - Headache [None]
  - Stomatitis [None]
